FAERS Safety Report 9410155 (Version 1)
Quarter: 2013Q2

REPORT INFORMATION
  Report Type: Spontaneous
  Country: US (occurrence: None)
  Receive Date: 20130419
  Receipt Date: 20130419
  Transmission Date: 20140414
  Serious: No
  Sender: FDA-Public Use
  Company Number: RSAE102810EF-003

PATIENT
  Age: 5 Year
  Sex: Male
  Weight: 15.88 kg

DRUGS (1)
  1. HYLAND^S TEETHING TABLETS [Suspect]
     Indication: TEETHING
     Dosage: 1/4 BOTTLE INGESTION?

REACTIONS (3)
  - Dyspnoea [None]
  - Rash [None]
  - Croup infectious [None]
